FAERS Safety Report 11965962 (Version 1)
Quarter: 2016Q1

REPORT INFORMATION
  Report Type: Spontaneous
  Country: US (occurrence: None)
  Receive Date: 20160125
  Receipt Date: 20160125
  Transmission Date: 20160526
  Serious: Yes (Life-Threatening, Hospitalization, Disabling)
  Sender: FDA-Public Use
  Company Number: None

PATIENT
  Age: 81 Year
  Sex: Male
  Weight: 73.03 kg

DRUGS (3)
  1. YERVOY [Suspect]
     Active Substance: IPILIMUMAB
     Indication: GENITOURINARY MELANOMA
     Dates: start: 201409, end: 201412
  2. HYDROCORTISONE. [Concomitant]
     Active Substance: HYDROCORTISONE
  3. LEVOTHYROXINE. [Concomitant]
     Active Substance: LEVOTHYROXINE

REACTIONS (11)
  - Coma [None]
  - Fall [None]
  - Dysstasia [None]
  - Dyspnoea [None]
  - Incoherent [None]
  - Adrenal insufficiency [None]
  - Gait disturbance [None]
  - Dizziness [None]
  - Brain oedema [None]
  - Blood pressure decreased [None]
  - Asthenia [None]

NARRATIVE: CASE EVENT DATE: 20141219
